FAERS Safety Report 17915462 (Version 1)
Quarter: 2020Q2

REPORT INFORMATION
  Report Type: Spontaneous
  Country: US (occurrence: US)
  Receive Date: 20200619
  Receipt Date: 20200619
  Transmission Date: 20200714
  Serious: No
  Sender: FDA-Public Use
  Company Number: US-ASTRAZENECA-2020SE77389

PATIENT
  Sex: Female
  Weight: 53.1 kg

DRUGS (8)
  1. TAGRISSO [Suspect]
     Active Substance: OSIMERTINIB
     Indication: NON-SMALL CELL LUNG CANCER
     Route: 048
     Dates: start: 202005
  2. EDOXABAN [Concomitant]
     Active Substance: EDOXABAN TOSYLATE
  3. FLUTICASONE NASAL APRAY [Concomitant]
  4. TRAMADOL. [Concomitant]
     Active Substance: TRAMADOL
  5. OXYCODONE [Concomitant]
     Active Substance: OXYCODONE
  6. CALCIUM CARBONATE WITH VITAMIN D [Concomitant]
     Active Substance: CALCIUM CARBONATE\ERGOCALCIFEROL
  7. CLONAZEPAM. [Concomitant]
     Active Substance: CLONAZEPAM
  8. ALBUTEROL INHALER [Concomitant]
     Active Substance: ALBUTEROL

REACTIONS (9)
  - Neuralgia [Recovered/Resolved]
  - Influenza [Unknown]
  - Decreased appetite [Recovered/Resolved]
  - Oropharyngeal pain [Recovered/Resolved]
  - Asthenia [Recovered/Resolved]
  - Vomiting [Recovered/Resolved]
  - Nausea [Recovered/Resolved]
  - Pyrexia [Recovered/Resolved]
  - Chest discomfort [Recovered/Resolved]
